FAERS Safety Report 9348004 (Version 1)
Quarter: 2013Q2

REPORT INFORMATION
  Report Type: Report from Study
  Country: LS (occurrence: LB)
  Receive Date: 20130614
  Receipt Date: 20130614
  Transmission Date: 20140414
  Serious: Yes (Other)
  Sender: FDA-Public Use
  Company Number: LS-VERTEX PHARMACEUTICALS INC-2013-007055

PATIENT
  Age: 36 Year
  Sex: Male

DRUGS (3)
  1. VX-950 (TELAPREVIR) [Suspect]
     Indication: HEPATITIS C
     Dosage: 375 MG, TID
     Route: 048
     Dates: start: 20130401
  2. RIBAVIRIN [Suspect]
     Indication: HEPATITIS C
     Dosage: DOSAGE FORM: TABLET
     Route: 048
  3. PEGASYS [Suspect]
     Indication: HEPATITIS C
     Dosage: DOSAGE FORM: INJECTION
     Route: 058

REACTIONS (2)
  - Nasal septum perforation [Not Recovered/Not Resolved]
  - Cough [Not Recovered/Not Resolved]
